FAERS Safety Report 20782069 (Version 6)
Quarter: 2023Q1

REPORT INFORMATION
  Report Type: Report from Study
  Country: US (occurrence: US)
  Receive Date: 20220504
  Receipt Date: 20230307
  Transmission Date: 20230417
  Serious: Yes (Hospitalization)
  Sender: FDA-Public Use
  Company Number: US-002147023-NVSC2022US099646

PATIENT
  Sex: Male

DRUGS (9)
  1. TREPROSTINIL [Suspect]
     Active Substance: TREPROSTINIL
     Indication: Pulmonary arterial hypertension
     Dosage: 74 UNK, CONT (NG/KG/MIN), (STRENGTH: 1MG/ML)
     Route: 042
     Dates: start: 202204
  2. TREPROSTINIL [Suspect]
     Active Substance: TREPROSTINIL
     Dosage: 36 NG/KG/MIN CONT (STRENGTH: 5MG/ML)
     Route: 042
     Dates: start: 20220417
  3. TREPROSTINIL [Suspect]
     Active Substance: TREPROSTINIL
     Dosage: CONT (36 NG/KG/MIN) (STRENGTH: 5MG/ML)
     Route: 042
     Dates: start: 20220418
  4. TREPROSTINIL [Suspect]
     Active Substance: TREPROSTINIL
     Dosage: 1 MG, TID
     Route: 048
  5. TREPROSTINIL [Suspect]
     Active Substance: TREPROSTINIL
     Dosage: 1 MG, TID, EVERY 3 4 DAYS
     Route: 048
  6. TREPROSTINIL [Suspect]
     Active Substance: TREPROSTINIL
     Dosage: (14 NG/KG/MIN), CONT
     Route: 041
     Dates: start: 20220419
  7. TREPROSTINIL [Suspect]
     Active Substance: TREPROSTINIL
     Dosage: 0.009 UG/KG, CONT
     Route: 042
  8. TREPROSTINIL [Suspect]
     Active Substance: TREPROSTINIL
     Dosage: UNK, CONT
     Route: 041
     Dates: start: 20220418
  9. TREPROSTINIL [Suspect]
     Active Substance: TREPROSTINIL
     Dosage: 0.009 UG, CONT
     Route: 041

REACTIONS (3)
  - Vascular device infection [Recovered/Resolved]
  - Flushing [Unknown]
  - Diarrhoea [Unknown]
